FAERS Safety Report 16661786 (Version 1)
Quarter: 2019Q3

REPORT INFORMATION
  Report Type: Spontaneous
  Country: RU (occurrence: RU)
  Receive Date: 20190802
  Receipt Date: 20190802
  Transmission Date: 20191004
  Serious: Yes (Other)
  Sender: FDA-Public Use
  Company Number: PHHY2019RU174889

PATIENT
  Sex: Female

DRUGS (4)
  1. METHOTREXATE. [Suspect]
     Active Substance: METHOTREXATE
     Dosage: 30 MG/M2, QW
     Route: 040
  2. METHOTREXATE. [Suspect]
     Active Substance: METHOTREXATE
     Dosage: 1 G/M2, UNK (OVER 36 HOURS)
     Route: 042
  3. METHOTREXATE. [Suspect]
     Active Substance: METHOTREXATE
     Indication: ACUTE LYMPHOCYTIC LEUKAEMIA
     Dosage: 5 MG/M2, QD (6 HR BLOCKS)
     Route: 041
  4. METHOTREXATE. [Suspect]
     Active Substance: METHOTREXATE
     Dosage: UNK (15 INTRATHECAL DOSES)
     Route: 037

REACTIONS (2)
  - Acute lymphocytic leukaemia recurrent [Unknown]
  - Toxic encephalopathy [Recovering/Resolving]
